FAERS Safety Report 10431231 (Version 1)
Quarter: 2014Q3

REPORT INFORMATION
  Report Type: Spontaneous
  Country: US (occurrence: None)
  Receive Date: 20140815
  Receipt Date: 20140815
  Transmission Date: 20150326
  Serious: No
  Sender: FDA-Public Use
  Company Number: A-NJ2014-100160

PATIENT
  Age: 72 Year
  Sex: Female

DRUGS (12)
  1. OPSUMIT [Suspect]
     Active Substance: MACITENTAN
     Indication: PULMONARY ARTERIAL HYPERTENSION
     Route: 048
     Dates: start: 20140501
  2. COUMADIN [Concomitant]
     Active Substance: WARFARIN SODIUM
  3. NEURONTIN [Concomitant]
     Active Substance: GABAPENTIN
  4. ALENDRONATE (ALENDRONATE SODIUM) [Concomitant]
     Active Substance: ALENDRONATE SODIUM
  5. ZITHROMAX [Concomitant]
     Active Substance: AZITHROMYCIN DIHYDRATE
  6. LASIX [Concomitant]
     Active Substance: FUROSEMIDE
  7. CLARITIN (GLICLAZIDE) [Concomitant]
     Active Substance: GLICLAZIDE
  8. EYEVITE (MINERALS NOS, VITAMINS NOS) [Concomitant]
  9. TYLENOL [Concomitant]
     Active Substance: ACETAMINOPHEN
  10. FLONASE [Concomitant]
     Active Substance: FLUTICASONE PROPIONATE
  11. METOPROLOL [Concomitant]
     Active Substance: METOPROLOL
  12. PRAVASTATIN [Concomitant]
     Active Substance: PRAVASTATIN\PRAVASTATIN SODIUM

REACTIONS (1)
  - Feeling hot [None]

NARRATIVE: CASE EVENT DATE: 20140501
